FAERS Safety Report 11971425 (Version 2)
Quarter: 2016Q1

REPORT INFORMATION
  Report Type: Spontaneous
  Country: US (occurrence: US)
  Receive Date: 20160128
  Receipt Date: 20160311
  Transmission Date: 20160526
  Serious: Yes (Hospitalization)
  Sender: FDA-Public Use
  Company Number: US-ACTELION-A-NJ2014-102166

PATIENT
  Age: 75 Year
  Sex: Male

DRUGS (2)
  1. OPSUMIT [Suspect]
     Active Substance: MACITENTAN
     Indication: PULMONARY ARTERIAL HYPERTENSION
     Dosage: 10 MG, UNK
     Route: 048
     Dates: start: 20140127
  2. TYVASO [Concomitant]
     Active Substance: TREPROSTINIL

REACTIONS (10)
  - Arthralgia [Unknown]
  - Pulmonary fibrosis [Unknown]
  - Dizziness [Unknown]
  - Oedema peripheral [Unknown]
  - Fatigue [Unknown]
  - Dyspnoea [Unknown]
  - Walking distance test abnormal [Unknown]
  - Decreased activity [Unknown]
  - Dyspnoea exertional [Unknown]
  - Chest discomfort [Unknown]
